FAERS Safety Report 9361270 (Version 1)
Quarter: 2013Q2

REPORT INFORMATION
  Report Type: Report from Study
  Country: US (occurrence: US)
  Receive Date: 20130621
  Receipt Date: 20130621
  Transmission Date: 20140414
  Serious: Yes (Hospitalization)
  Sender: FDA-Public Use
  Company Number: US-009507513-1306USA006103

PATIENT
  Age: 61 Year
  Sex: Male

DRUGS (15)
  1. TEMODAR [Suspect]
     Indication: GLIOBLASTOMA
     Dosage: 150 MG, QD 75MG/M2
     Route: 048
     Dates: start: 20130509
  2. TEMODAR [Suspect]
     Dosage: UNK
     Dates: start: 20130519
  3. TEMODAR [Suspect]
     Dosage: UNK
     Dates: start: 20130520
  4. BEVACIZUMAB [Suspect]
     Indication: GLIOBLASTOMA
     Dosage: 10MG/KG(800 MG,1 IN 2 WEEK)
     Route: 042
     Dates: start: 20130317
  5. LISINOPRIL [Concomitant]
     Dosage: NK UNK, QD
  6. HYDRALAZINE HYDROCHLORIDE [Concomitant]
     Dosage: 10 MT, Q8H
  7. KEPPRA [Concomitant]
     Dosage: 2000MG (1000 MG,1 IN 12 HR)
  8. ZANTAC [Concomitant]
     Dosage: 300MG (150MG ,1 IN 12 HR)
  9. MICARDIS [Concomitant]
     Dosage: UNK UNK, QD
  10. TYLENOL [Concomitant]
     Dosage: UNK, PRN
  11. DEXAMETHASONE [Concomitant]
     Dosage: 32MG(16 MG, 2 IN 1 D)
  12. FLEXERIL [Concomitant]
     Dosage: 10 MG 3 TIMES A DAY AS NEEDED
  13. ZOFRAN [Concomitant]
     Dosage: 8 MG, UNK
  14. RISPERDAL [Concomitant]
     Dosage: 1 MG, HS
  15. NOVOLOG [Concomitant]
     Dosage: UNK

REACTIONS (4)
  - Alanine aminotransferase increased [Unknown]
  - Haemorrhage intracranial [Unknown]
  - Hypertension [Unknown]
  - Pyrexia [Unknown]
